FAERS Safety Report 14430915 (Version 1)
Quarter: 2018Q1

REPORT INFORMATION
  Report Type: Spontaneous
  Country: IN (occurrence: IN)
  Receive Date: 20180124
  Receipt Date: 20180124
  Transmission Date: 20180509
  Serious: No
  Sender: FDA-Public Use
  Company Number: IN-ALVOGEN-2018-ALVOGEN-094938

PATIENT
  Age: 55 Year
  Sex: Male

DRUGS (2)
  1. AMPHOTERICIN B. [Concomitant]
     Active Substance: AMPHOTERICIN B
     Indication: FUNGAL INFECTION
  2. VORICONAZOLE. [Suspect]
     Active Substance: VORICONAZOLE
     Indication: FUNGAL INFECTION

REACTIONS (1)
  - Mucormycosis [Recovering/Resolving]
